FAERS Safety Report 4633642-9 (Version None)
Quarter: 2005Q2

REPORT INFORMATION
  Report Type: 
  Country: None (occurrence: None)
  Receive Date: 20050325
  Receipt Date: 20050104
  Transmission Date: 20051028
  Serious: No
  Sender: FDA-Public Use
  Company Number: USA050187398

PATIENT
  Age: 42 Year
  Sex: Female
  Weight: 41 kg

DRUGS (6)
  1. FORTEO [Suspect]
     Indication: OSTEOPOROSIS
     Dosage: 20 UG/1 IN THE EVENING
     Dates: start: 20041217
  2. ENBREL [Concomitant]
  3. LORTAB [Concomitant]
  4. DURAGESIC (FENTANYL) [Concomitant]
  5. XANAX (ALPRAZOLAM DUM) [Concomitant]
  6. FOSAMAX [Concomitant]

REACTIONS (9)
  - ARTHRALGIA [None]
  - BACK PAIN [None]
  - BONE PAIN [None]
  - CYSTITIS [None]
  - MUSCLE SPASMS [None]
  - MYALGIA [None]
  - PAIN IN EXTREMITY [None]
  - RASH PRURITIC [None]
  - URTICARIA [None]
